FAERS Safety Report 8803718 (Version 1)
Quarter: 2012Q4

REPORT INFORMATION
  Report Type: 
  Country: US (occurrence: US)
  Receive Date: 20120923
  Receipt Date: 20120923
  Transmission Date: 20130627
  Serious: No
  Sender: FDA-Public Use
  Company Number: US-009507513-1209USA005695

PATIENT
  Age: 57 Year
  Sex: Female

DRUGS (1)
  1. SAPHRIS [Suspect]
     Dosage: 1 DF, UNK
     Route: 048

REACTIONS (4)
  - Mania [Unknown]
  - Somnolence [Unknown]
  - Hypersomnia [Unknown]
  - Incorrect route of drug administration [Unknown]
